FAERS Safety Report 13543683 (Version 1)
Quarter: 2017Q2

REPORT INFORMATION
  Report Type: Spontaneous
  Country: US (occurrence: US)
  Receive Date: 20170515
  Receipt Date: 20170515
  Transmission Date: 20170830
  Serious: No
  Sender: FDA-Public Use
  Company Number: US-GLENMARK PHARMACEUTICALS-2017GMK026599

PATIENT

DRUGS (6)
  1. OMEPRAZOLE. [Suspect]
     Active Substance: OMEPRAZOLE
     Dosage: 1 DF, BEFORE DINNER
     Route: 048
  2. LEVOTHYROXINE. [Concomitant]
     Active Substance: LEVOTHYROXINE
     Dosage: 75 ?G, UNK
     Route: 048
  3. SIMVASTATIN. [Concomitant]
     Active Substance: SIMVASTATIN
     Indication: BLOOD CHOLESTEROL INCREASED
     Dosage: UNK
     Route: 048
  4. IRBESARTAN. [Concomitant]
     Active Substance: IRBESARTAN
     Indication: HYPERTENSION
     Dosage: UNK
     Route: 048
  5. OMEPRAZOLE. [Suspect]
     Active Substance: OMEPRAZOLE
     Indication: GASTROOESOPHAGEAL REFLUX DISEASE
     Dosage: 1 DF, BEFORE DINNER
     Route: 048
     Dates: start: 200711
  6. LEVOTHYROXINE. [Concomitant]
     Active Substance: LEVOTHYROXINE
     Indication: HYPOTHYROIDISM
     Dosage: 50 ?G, UNK
     Route: 048

REACTIONS (2)
  - Incorrect drug administration duration [Unknown]
  - No adverse event [Unknown]

NARRATIVE: CASE EVENT DATE: 200711
